FAERS Safety Report 14047861 (Version 1)
Quarter: 2017Q4

REPORT INFORMATION
  Report Type: Report from Study
  Country: US (occurrence: US)
  Receive Date: 20171005
  Receipt Date: 20171005
  Transmission Date: 20180321
  Serious: Yes (Disabling)
  Sender: FDA-Public Use
  Company Number: US-GILEAD-2017-0291877

PATIENT
  Age: 30 Year
  Sex: Female
  Weight: 63.49 kg

DRUGS (4)
  1. SPIRONOLACTONE. [Concomitant]
     Active Substance: SPIRONOLACTONE
  2. ESTRADIOL VALERATE. [Interacting]
     Active Substance: ESTRADIOL VALERATE
     Indication: TRANSGENDER HORMONAL THERAPY
     Dosage: 20 MG, UNK
     Route: 030
  3. SOFOSBUVIR W/VELPATASVIR [Suspect]
     Active Substance: SOFOSBUVIR\VELPATASVIR
     Indication: CHRONIC HEPATITIS C
     Dosage: 1 DF, UNK
     Route: 048
     Dates: start: 201705, end: 20170908
  4. PROGESTERONE. [Concomitant]
     Active Substance: PROGESTERONE

REACTIONS (8)
  - Arthralgia [Recovered/Resolved]
  - Nausea [Recovered/Resolved]
  - Vertigo [Recovered/Resolved]
  - Inappropriate schedule of drug administration [Recovered/Resolved]
  - Muscle spasms [Recovered/Resolved]
  - Fatigue [Recovered/Resolved]
  - Drug interaction [Recovered/Resolved]
  - Loss of personal independence in daily activities [Recovered/Resolved]

NARRATIVE: CASE EVENT DATE: 20170601
